FAERS Safety Report 6624223-6 (Version None)
Quarter: 2010Q1

REPORT INFORMATION
  Report Type: 
  Country: None (occurrence: None)
  Receive Date: 20100310
  Receipt Date: 20091028
  Transmission Date: 20100710
  Serious: Yes (Hospitalization)
  Sender: FDA-Public Use
  Company Number: US-BIOGENIDEC-2009BI035360

PATIENT
  Sex: Female

DRUGS (2)
  1. AVONEX [Suspect]
     Indication: DRUG USE FOR UNKNOWN INDICATION
     Route: 030
     Dates: end: 20000101
  2. AVONEX [Suspect]
     Route: 030
     Dates: start: 20091001

REACTIONS (1)
  - MULTIPLE SCLEROSIS RELAPSE [None]
